FAERS Safety Report 19074727 (Version 1)
Quarter: 2021Q1

REPORT INFORMATION
  Report Type: Report from Study
  Country: BR (occurrence: BR)
  Receive Date: 20210330
  Receipt Date: 20210330
  Transmission Date: 20210420
  Serious: Yes (Other)
  Sender: FDA-Public Use
  Company Number: BR-TAKEDA-2021TUS019537

PATIENT

DRUGS (1)
  1. IDURSULFASE [Suspect]
     Active Substance: IDURSULFASE
     Indication: PRODUCT USED FOR UNKNOWN INDICATION
     Route: 065

REACTIONS (13)
  - Meningitis [Unknown]
  - Motor neurone disease [Unknown]
  - Device issue [Unknown]
  - Physical disability [Unknown]
  - Respiratory disorder [Unknown]
  - Dementia [Unknown]
  - Disease complication [Unknown]
  - Dependence [Unknown]
  - Developmental regression [Unknown]
  - Ill-defined disorder [Unknown]
  - Infection [Unknown]
  - Life expectancy shortened [Unknown]
  - Disease progression [Unknown]
